FAERS Safety Report 9348637 (Version 1)
Quarter: 2013Q2

REPORT INFORMATION
  Report Type: Spontaneous
  Country: FR (occurrence: FR)
  Receive Date: 20130614
  Receipt Date: 20130614
  Transmission Date: 20140414
  Serious: Yes (Other)
  Sender: FDA-Public Use
  Company Number: FR-TEVA-412241ISR

PATIENT
  Age: 65 Year
  Sex: Male

DRUGS (5)
  1. FUROSEMIDE TEVA 40 MG [Suspect]
     Indication: CARDIAC FAILURE
     Dosage: FOR MORE THAN A YEAR
     Route: 048
     Dates: end: 20130507
  2. RAMIPRIL TEVA [Concomitant]
  3. OLANZAPINE TEVA [Concomitant]
  4. NEBIVOLOL TEVA [Concomitant]
  5. INSPRA [Concomitant]

REACTIONS (6)
  - Upper limb fracture [Unknown]
  - Muscle rupture [Unknown]
  - Fall [Unknown]
  - Dizziness [Not Recovered/Not Resolved]
  - Feeling drunk [Not Recovered/Not Resolved]
  - Asthenia [Not Recovered/Not Resolved]
